FAERS Safety Report 7391842-1 (Version None)
Quarter: 2011Q2

REPORT INFORMATION
  Report Type: 
  Country: None (occurrence: None)
  Receive Date: 20110404
  Receipt Date: 20110323
  Transmission Date: 20111010
  Serious: Yes (Hospitalization)
  Sender: FDA-Public Use
  Company Number: US-ROCHE-767451

PATIENT
  Sex: Male

DRUGS (19)
  1. MYCOPHENOLATE MOFETIL [Suspect]
     Route: 048
     Dates: start: 20110126, end: 20110201
  2. NORVASC [Concomitant]
     Dates: start: 20101101
  3. CIPRO [Concomitant]
     Dates: start: 20101223, end: 20110102
  4. PHOSPHATE NOVARTIS [Concomitant]
     Dates: start: 20101105
  5. DELTASONE [Concomitant]
     Dates: start: 20101014
  6. VALTREX [Concomitant]
     Dates: start: 20101006
  7. MYCOPHENOLATE MOFETIL [Suspect]
     Route: 048
     Dates: start: 20100925, end: 20110127
  8. ZANTAC [Concomitant]
     Dates: start: 20100922
  9. BACTRIM DS [Concomitant]
     Dates: start: 20100922
  10. FK506 [Suspect]
     Route: 048
     Dates: start: 20110128, end: 20110216
  11. NOROXIN [Concomitant]
     Dates: start: 20101203, end: 20110102
  12. CENTRUM [Concomitant]
     Dates: start: 20101101
  13. FK506 [Suspect]
     Route: 048
     Dates: end: 20110120
  14. FK506 [Suspect]
     Route: 048
     Dates: start: 20110121, end: 20110127
  15. FK506 [Suspect]
     Route: 048
     Dates: start: 20110217
  16. MACROBID [Concomitant]
     Dates: start: 20110113, end: 20110129
  17. MYCOPHENOLATE MOFETIL [Suspect]
     Route: 048
     Dates: start: 20110207
  18. ENTROPHEN [Concomitant]
     Dates: start: 20100928
  19. BENZAC [Concomitant]
     Dates: start: 20101020

REACTIONS (4)
  - LEUKOPENIA [None]
  - LYMPHADENOPATHY [None]
  - URINARY TRACT INFECTION [None]
  - BLOOD CREATININE INCREASED [None]
